FAERS Safety Report 15956549 (Version 5)
Quarter: 2019Q2

REPORT INFORMATION
  Report Type: Spontaneous
  Country: US (occurrence: US)
  Receive Date: 20190213
  Receipt Date: 20190604
  Transmission Date: 20190711
  Serious: Yes (Other)
  Sender: FDA-Public Use
  Company Number: US-ASTRAZENECA-2018SF13746

PATIENT
  Age: 22250 Day
  Sex: Female
  Weight: 90.3 kg

DRUGS (63)
  1. PREVACID 24 HR [Suspect]
     Active Substance: LANSOPRAZOLE
     Indication: GASTROOESOPHAGEAL REFLUX DISEASE
     Route: 065
  2. ACIPHEX [Concomitant]
     Active Substance: RABEPRAZOLE SODIUM
  3. LIPITOR [Concomitant]
     Active Substance: ATORVASTATIN CALCIUM
  4. GABAPENTIN. [Concomitant]
     Active Substance: GABAPENTIN
  5. LEVOTHYROXINE. [Concomitant]
     Active Substance: LEVOTHYROXINE
  6. NOVOLOG [Concomitant]
     Active Substance: INSULIN ASPART
  7. ROPINIROLE. [Concomitant]
     Active Substance: ROPINIROLE
  8. VOLTAREN [Concomitant]
     Active Substance: DICLOFENAC SODIUM
  9. DILAZEP DIHYDROCHLORIDE [Concomitant]
     Active Substance: DILAZEP DIHYDROCHLORIDE
  10. PREVACID [Suspect]
     Active Substance: LANSOPRAZOLE
     Indication: GASTROOESOPHAGEAL REFLUX DISEASE
     Route: 065
     Dates: start: 20000101, end: 20190105
  11. LOSARTAN. [Concomitant]
     Active Substance: LOSARTAN
  12. LANTUS [Concomitant]
     Active Substance: INSULIN GLARGINE
  13. ATENOLOL. [Concomitant]
     Active Substance: ATENOLOL
  14. LOSARTAN. [Concomitant]
     Active Substance: LOSARTAN
  15. PREVACID [Suspect]
     Active Substance: LANSOPRAZOLE
     Indication: GASTROOESOPHAGEAL REFLUX DISEASE
     Route: 065
  16. TRICOR [Concomitant]
     Active Substance: FENOFIBRATE
  17. LOSARTAN. [Concomitant]
     Active Substance: LOSARTAN
  18. A-HYDROCORT [Concomitant]
     Active Substance: HYDROCORTISONE SODIUM SUCCINATE
  19. CIPROFLOXACIN. [Concomitant]
     Active Substance: CIPROFLOXACIN
  20. AZITHROMYCIN ANHYDROUS. [Concomitant]
     Active Substance: AZITHROMYCIN ANHYDROUS
  21. NEXIUM [Suspect]
     Active Substance: ESOMEPRAZOLE MAGNESIUM
     Indication: GASTROOESOPHAGEAL REFLUX DISEASE
     Route: 048
  22. NEXIUM 24HR [Suspect]
     Active Substance: ESOMEPRAZOLE MAGNESIUM
     Indication: GASTROOESOPHAGEAL REFLUX DISEASE
     Route: 048
  23. PRILOSEC [Suspect]
     Active Substance: OMEPRAZOLE MAGNESIUM
     Indication: GASTROOESOPHAGEAL REFLUX DISEASE
     Route: 048
  24. TRAZODONE [Concomitant]
     Active Substance: TRAZODONE HYDROCHLORIDE
  25. ALPRAZOLAM. [Concomitant]
     Active Substance: ALPRAZOLAM
  26. BENZONATATE. [Concomitant]
     Active Substance: BENZONATATE
  27. AMITRIPTYLINE [Concomitant]
     Active Substance: AMITRIPTYLINE
  28. CLOPIDOGREL [Concomitant]
     Active Substance: CLOPIDOGREL BISULFATE
  29. ATENOLOL. [Concomitant]
     Active Substance: ATENOLOL
  30. PRILOSEC OTC [Suspect]
     Active Substance: OMEPRAZOLE MAGNESIUM
     Indication: GASTROOESOPHAGEAL REFLUX DISEASE
     Route: 048
     Dates: start: 20030101, end: 20190205
  31. ALLOPURINOL. [Concomitant]
     Active Substance: ALLOPURINOL
  32. PREDNISONE. [Concomitant]
     Active Substance: PREDNISONE
  33. RESTASIS [Concomitant]
     Active Substance: CYCLOSPORINE
  34. PANTOPRAZOLE [Concomitant]
     Active Substance: PANTOPRAZOLE
  35. TIZANIDINE. [Concomitant]
     Active Substance: TIZANIDINE
  36. ROSUVASTATIN. [Concomitant]
     Active Substance: ROSUVASTATIN
  37. PLAVIX [Concomitant]
     Active Substance: CLOPIDOGREL BISULFATE
  38. TIZANIDINE. [Concomitant]
     Active Substance: TIZANIDINE
  39. NEXIUM [Suspect]
     Active Substance: ESOMEPRAZOLE MAGNESIUM
     Indication: GASTROOESOPHAGEAL REFLUX DISEASE
     Route: 048
     Dates: start: 20000101, end: 20190205
  40. NEXIUM 24HR [Suspect]
     Active Substance: ESOMEPRAZOLE MAGNESIUM
     Indication: GASTROOESOPHAGEAL REFLUX DISEASE
     Route: 048
     Dates: start: 20140101, end: 20190205
  41. PRILOSEC OTC [Suspect]
     Active Substance: OMEPRAZOLE MAGNESIUM
     Indication: GASTROOESOPHAGEAL REFLUX DISEASE
     Route: 048
  42. PREVACID 24 HR [Suspect]
     Active Substance: LANSOPRAZOLE
     Indication: GASTROOESOPHAGEAL REFLUX DISEASE
     Route: 065
     Dates: start: 20090101, end: 20190205
  43. ATENOLOL. [Concomitant]
     Active Substance: ATENOLOL
  44. FENOFIBRATE. [Concomitant]
     Active Substance: FENOFIBRATE
  45. SERTRALINE [Concomitant]
     Active Substance: SERTRALINE HYDROCHLORIDE
  46. LEVEMIR [Concomitant]
     Active Substance: INSULIN DETEMIR
  47. ANUSOL NOS [Concomitant]
     Active Substance: BALSAM PERU\BENZYL BENZOATE\BISMUTH HYDROXIDE\BISMUTH SUBGALLATE\HYDROCORTISONE ACETATE\ZINC OXIDE
  48. PRILOSEC [Suspect]
     Active Substance: OMEPRAZOLE MAGNESIUM
     Indication: GASTROOESOPHAGEAL REFLUX DISEASE
     Route: 048
     Dates: start: 20000101, end: 20190205
  49. LISINOPRIL. [Concomitant]
     Active Substance: LISINOPRIL
  50. CEPHALEXIN. [Concomitant]
     Active Substance: CEPHALEXIN
  51. TRAZODONE [Concomitant]
     Active Substance: TRAZODONE HYDROCHLORIDE
  52. LOVASTATIN. [Concomitant]
     Active Substance: LOVASTATIN
  53. DONEPEZIL. [Concomitant]
     Active Substance: DONEPEZIL
  54. ALLOPURINOL. [Concomitant]
     Active Substance: ALLOPURINOL
  55. PRILOSEC [Suspect]
     Active Substance: OMEPRAZOLE MAGNESIUM
     Indication: GASTROOESOPHAGEAL REFLUX DISEASE
     Route: 048
  56. PANTOPRAZOLE [Suspect]
     Active Substance: PANTOPRAZOLE
     Indication: GASTROOESOPHAGEAL REFLUX DISEASE
     Dosage: 20.0MG UNKNOWN
     Route: 065
     Dates: start: 2018
  57. ESTRADIOL. [Concomitant]
     Active Substance: ESTRADIOL
  58. TRAZODONE [Concomitant]
     Active Substance: TRAZODONE HYDROCHLORIDE
  59. OXYCODONE [Concomitant]
     Active Substance: OXYCODONE
  60. BUPROPION. [Concomitant]
     Active Substance: BUPROPION
  61. DONEPEZIL. [Concomitant]
     Active Substance: DONEPEZIL
  62. LEVOTHYROXINE. [Concomitant]
     Active Substance: LEVOTHYROXINE
  63. SPIRONOLACTONE. [Concomitant]
     Active Substance: SPIRONOLACTONE

REACTIONS (7)
  - Hyperparathyroidism secondary [Unknown]
  - Renal failure [Unknown]
  - Nephrogenic anaemia [Unknown]
  - Renal injury [Unknown]
  - Tubulointerstitial nephritis [Not Recovered/Not Resolved]
  - Chronic kidney disease [Not Recovered/Not Resolved]
  - Acute kidney injury [Not Recovered/Not Resolved]

NARRATIVE: CASE EVENT DATE: 20100604
